FAERS Safety Report 9241028 (Version 2)
Quarter: 2013Q2

REPORT INFORMATION
  Report Type: Spontaneous
  Country: IT (occurrence: IT)
  Receive Date: 20130419
  Receipt Date: 20130617
  Transmission Date: 20140414
  Serious: Yes (Other)
  Sender: FDA-Public Use
  Company Number: IT-BRISTOL-MYERS SQUIBB COMPANY-18803866

PATIENT
  Age: 75 Year
  Sex: Male

DRUGS (7)
  1. ERBITUX SOLN FOR INF 5MG/ML [Suspect]
     Indication: ADENOCARCINOMA OF COLON
     Route: 042
     Dates: start: 20130305, end: 20130320
  2. FLUOROURACIL [Suspect]
     Indication: ADENOCARCINOMA OF COLON
     Dosage: 1G/20ML: - 20MAR13.735MG:05MAR13-20MAR2013(15 DYS).
     Route: 042
     Dates: start: 20130305, end: 20130320
  3. IRINOTECAN [Suspect]
     Indication: ADENOCARCINOMA OF COLON
     Route: 042
     Dates: start: 20130305, end: 20130320
  4. SOLDESAM [Concomitant]
     Indication: PROPHYLAXIS OF NAUSEA AND VOMITING
     Dosage: 8MG/2ML
  5. RANIDIL [Concomitant]
     Dosage: 50MG/5ML
  6. ONDANSETRON [Concomitant]
     Indication: PROPHYLAXIS OF NAUSEA AND VOMITING
     Dosage: 8MG/4ML
  7. LEVOFOLENE [Concomitant]
     Dosage: DOSE:122.5MG

REACTIONS (3)
  - Anaemia [Recovering/Resolving]
  - Leukopenia [Recovering/Resolving]
  - Neutropenia [Recovering/Resolving]
